FAERS Safety Report 10681063 (Version 1)
Quarter: 2014Q4

REPORT INFORMATION
  Report Type: Spontaneous
  Country: GB (occurrence: US)
  Receive Date: 20141229
  Receipt Date: 20141229
  Transmission Date: 20150529
  Serious: Yes (Death, Other)
  Sender: FDA-Public Use
  Company Number: GB-MYLANLABS-2014M1015824

PATIENT

DRUGS (2)
  1. FONDAPARINUX [Suspect]
     Active Substance: FONDAPARINUX
     Indication: OFF LABEL USE
  2. FONDAPARINUX [Suspect]
     Active Substance: FONDAPARINUX
     Indication: CHRONIC OBSTRUCTIVE PULMONARY DISEASE
     Dosage: 10 MG/0.8 ML, QD
     Dates: start: 2000

REACTIONS (3)
  - Cardiac failure congestive [Fatal]
  - Off label use [Unknown]
  - Neoplasm malignant [Fatal]
